FAERS Safety Report 5393111-8 (Version None)
Quarter: 2007Q3

REPORT INFORMATION
  Report Type: 
  Country: None (occurrence: None)
  Receive Date: 20070718
  Receipt Date: 20070703
  Transmission Date: 20080115
  Serious: Yes (Hospitalization)
  Sender: FDA-Public Use
  Company Number: 158642ISR

PATIENT
  Age: 66 Year
  Sex: Female

DRUGS (2)
  1. CEFTRIAXONE [Suspect]
  2. IBUPROFEN [Suspect]

REACTIONS (1)
  - TOXIC EPIDERMAL NECROLYSIS [None]
